FAERS Safety Report 7418134-6 (Version None)
Quarter: 2011Q2

REPORT INFORMATION
  Report Type: 
  Country: None (occurrence: None)
  Receive Date: 20110415
  Receipt Date: 20110412
  Transmission Date: 20111010
  Serious: Yes (Other)
  Sender: FDA-Public Use
  Company Number: US-PFIZER INC-2010004967

PATIENT
  Sex: Male
  Weight: 96.145 kg

DRUGS (7)
  1. WARFARIN [Concomitant]
     Indication: ANTICOAGULANT THERAPY
     Dosage: UNK
  2. CHANTIX [Suspect]
     Indication: SMOKING CESSATION THERAPY
     Dosage: 0.5 MG, 1X/DAY
     Route: 048
     Dates: start: 20091121
  3. BUSPIRONE [Concomitant]
     Dosage: 15 MG, 1X/DAY
     Route: 048
  4. CHANTIX [Suspect]
     Dosage: UNK
     Route: 048
  5. DOXYCYCLINE HYCLATE [Suspect]
     Indication: URINARY RETENTION
     Dosage: UNK
  6. EFFEXOR [Suspect]
     Indication: DEPRESSION
     Dosage: 225 MG, 1X/DAY
     Route: 048
     Dates: start: 20020101
  7. AMBIEN [Suspect]
     Dosage: 2 DF, 1X/DAY
     Route: 048

REACTIONS (6)
  - AGITATION [None]
  - DEPRESSION [None]
  - SLEEP DISORDER [None]
  - PSYCHOMOTOR HYPERACTIVITY [None]
  - MEMORY IMPAIRMENT [None]
  - CONFUSIONAL STATE [None]
